FAERS Safety Report 5067131-7 (Version None)
Quarter: 2006Q3

REPORT INFORMATION
  Report Type: 
  Country: None (occurrence: None)
  Receive Date: 20060801
  Receipt Date: 20060707
  Transmission Date: 20061208
  Serious: Yes (Other)
  Sender: FDA-Public Use
  Company Number: US-AMGEN-US185538

PATIENT
  Sex: Female

DRUGS (7)
  1. ENBREL [Suspect]
     Indication: PSORIASIS
  2. ENBREL [Suspect]
     Indication: PSORIATIC ARTHROPATHY
  3. METHOTREXATE [Suspect]
     Route: 048
  4. TOPROL-XL [Concomitant]
  5. PREMARIN [Concomitant]
  6. CALCIUM GLUCONATE [Concomitant]
  7. CORTICOSTEROIDS [Concomitant]
     Route: 061

REACTIONS (4)
  - KERATOCONJUNCTIVITIS SICCA [None]
  - NEUROLOGICAL SYMPTOM [None]
  - NUCLEAR MAGNETIC RESONANCE IMAGING BRAIN ABNORMAL [None]
  - PUNCTATE KERATITIS [None]
